FAERS Safety Report 6108201-1 (Version None)
Quarter: 2009Q1

REPORT INFORMATION
  Report Type: 
  Country: None (occurrence: None)
  Receive Date: 20090305
  Receipt Date: 20090305
  Transmission Date: 20090719
  Serious: Yes (Hospitalization)
  Sender: FDA-Public Use
  Company Number: None

PATIENT
  Sex: Female
  Weight: 130.91 kg

DRUGS (2)
  1. CARBOPLATIN [Suspect]
     Dosage: 640 MG
  2. TAXOL [Suspect]
     Dosage: 350 MG

REACTIONS (15)
  - ARTHRALGIA [None]
  - ASTHENIA [None]
  - BLOOD POTASSIUM DECREASED [None]
  - BODY TEMPERATURE DECREASED [None]
  - CATHETER SITE CELLULITIS [None]
  - CATHETER SITE ERYTHEMA [None]
  - CATHETER SITE INFECTION [None]
  - CATHETER SITE RELATED REACTION [None]
  - CATHETER SITE SWELLING [None]
  - FLUCTUANCE [None]
  - IMPLANT SITE ABSCESS [None]
  - INFECTION [None]
  - RESPIRATORY RATE INCREASED [None]
  - TREMOR [None]
  - WOUND INFECTION [None]
